FAERS Safety Report 6628128-6 (Version None)
Quarter: 2010Q1

REPORT INFORMATION
  Report Type: 
  Country: None (occurrence: None)
  Receive Date: 20100311
  Receipt Date: 20091008
  Transmission Date: 20100710
  Serious: No
  Sender: FDA-Public Use
  Company Number: A0810975A

PATIENT
  Sex: Female

DRUGS (2)
  1. NICORETTE [Suspect]
     Indication: DRUG USE FOR UNKNOWN INDICATION
     Route: 002
  2. HABITROL [Suspect]
     Indication: DRUG USE FOR UNKNOWN INDICATION
     Dosage: 21MG UNKNOWN
     Route: 062

REACTIONS (2)
  - OBSESSIVE THOUGHTS [None]
  - RESTLESSNESS [None]
